FAERS Safety Report 5065902-4 (Version None)
Quarter: 2006Q3

REPORT INFORMATION
  Report Type: 
  Country: None (occurrence: None)
  Receive Date: 20060728
  Receipt Date: 20060728
  Transmission Date: 20061208
  Serious: Yes (Death, Hospitalization)
  Sender: FDA-Public Use
  Company Number: None

PATIENT
  Sex: Male
  Weight: 87.0906 kg

DRUGS (4)
  1. TARGRETIN [Suspect]
     Indication: BLADDER CANCER
     Dosage: 836 MG=11 TABS  QD  PO
     Route: 048
     Dates: start: 20060703, end: 20060723
  2. TAXOTERE [Suspect]
     Dosage: 73.15 MG  Q WEEKX3/4 WEEKS   IV DRIP
     Route: 041
     Dates: start: 20060703, end: 20060717
  3. SYNTHROID [Concomitant]
  4. LIPITOR [Concomitant]

REACTIONS (9)
  - BLOOD PRESSURE SYSTOLIC INCREASED [None]
  - CHEST PAIN [None]
  - DYSPNOEA [None]
  - EMBOLISM [None]
  - HEART RATE INCREASED [None]
  - HYPOXIA [None]
  - OXYGEN SATURATION DECREASED [None]
  - PULMONARY EMBOLISM [None]
  - PULMONARY HYPERTENSION [None]
